FAERS Safety Report 7680404-4 (Version None)
Quarter: 2011Q3

REPORT INFORMATION
  Report Type: 
  Country: None (occurrence: None)
  Receive Date: 20110812
  Receipt Date: 20110808
  Transmission Date: 20111222
  Serious: Yes (Other)
  Sender: FDA-Public Use
  Company Number: CN-ROXANE LABORATORIES, INC.-2011-RO-01122RO

PATIENT
  Age: 41 Year
  Sex: Female

DRUGS (4)
  1. METHOTREXATE [Suspect]
     Indication: LEUKAEMIC INFILTRATION BRAIN
     Dosage: 15 MG
     Route: 037
  2. LIDOCAINE [Suspect]
     Indication: LOCAL ANAESTHESIA
     Dosage: 1.5 ML
  3. DEXAMETHASONE [Suspect]
     Indication: LEUKAEMIC INFILTRATION BRAIN
     Dosage: 5 MG
     Route: 037
  4. CYTARABINE [Suspect]
     Indication: LEUKAEMIC INFILTRATION BRAIN
     Dosage: 50 MG
     Route: 037

REACTIONS (7)
  - MYELOPATHY [None]
  - NEUROTOXICITY [None]
  - BLOOD CREATINE PHOSPHOKINASE INCREASED [None]
  - PRURITUS [None]
  - DYSPNOEA [None]
  - AGITATION [None]
  - MYALGIA [None]
